FAERS Safety Report 19872948 (Version 2)
Quarter: 2021Q4

REPORT INFORMATION
  Report Type: Spontaneous
  Country: US (occurrence: US)
  Receive Date: 20210922
  Receipt Date: 20211020
  Transmission Date: 20220303
  Serious: No
  Sender: FDA-Public Use
  Company Number: US-BOEHRINGERINGELHEIM-2021-BI-128490

PATIENT
  Sex: Female

DRUGS (1)
  1. TRADJENTA [Suspect]
     Active Substance: LINAGLIPTIN
     Indication: Product used for unknown indication
     Dosage: 1 TABLET DAILY
     Dates: start: 201906

REACTIONS (3)
  - Product complaint [Unknown]
  - Blood glucose increased [Recovered/Resolved]
  - Blood glucose fluctuation [Recovered/Resolved]

NARRATIVE: CASE EVENT DATE: 20210701
